FAERS Safety Report 4514414-2 (Version None)
Quarter: 2004Q4

REPORT INFORMATION
  Report Type: 
  Country: None (occurrence: None)
  Receive Date: 20041130
  Receipt Date: 20041122
  Transmission Date: 20050328
  Serious: Yes (Other)
  Sender: FDA-Public Use
  Company Number: ES-MERCK-0411ESP00027

PATIENT
  Age: 88 Year
  Sex: Male
  Weight: 70 kg

DRUGS (1)
  1. PRIMAXIN [Suspect]
     Indication: SEPSIS
     Route: 042
     Dates: start: 20041008, end: 20041014

REACTIONS (3)
  - CONVULSION [None]
  - EXCITABILITY [None]
  - HALLUCINATION [None]
